FAERS Safety Report 18100058 (Version 3)
Quarter: 2020Q3

REPORT INFORMATION
  Report Type: Spontaneous
  Country: JP (occurrence: JP)
  Receive Date: 20200731
  Receipt Date: 20200805
  Transmission Date: 20201103
  Serious: Yes (Hospitalization)
  Sender: FDA-Public Use
  Company Number: JP-JNJFOC-20200738679

PATIENT
  Age: 8 Decade
  Sex: Male

DRUGS (2)
  1. ZYTIGA [Suspect]
     Active Substance: ABIRATERONE ACETATE
     Indication: PROSTATE CANCER
     Dosage: DOSE UNKNOWN
     Route: 048
     Dates: start: 20200618, end: 20200720
  2. PREDNISOLONE. [Suspect]
     Active Substance: PREDNISOLONE
     Indication: DECREASED APPETITE
     Route: 048
     Dates: start: 20200618, end: 20200720

REACTIONS (5)
  - Haematemesis [Recovering/Resolving]
  - Decreased appetite [Unknown]
  - Off label use [Unknown]
  - Ulcer [Recovering/Resolving]
  - Prescribed underdose [Unknown]

NARRATIVE: CASE EVENT DATE: 2020
